FAERS Safety Report 15101020 (Version 1)
Quarter: 2018Q2

REPORT INFORMATION
  Report Type: Spontaneous
  Country: US (occurrence: US)
  Receive Date: 20180611
  Receipt Date: 20180611
  Transmission Date: 20180711
  Serious: Yes (Other)
  Sender: FDA-Public Use
  Company Number: None

PATIENT
  Age: 81 Year
  Sex: Female
  Weight: 54 kg

DRUGS (6)
  1. ADVAIR DISKUS [Concomitant]
     Active Substance: FLUTICASONE PROPIONATE\SALMETEROL XINAFOATE
     Dates: start: 20160826, end: 20180611
  2. INCRUSE ELLIPTA [Suspect]
     Active Substance: UMECLIDINIUM BROMIDE
     Indication: CHRONIC OBSTRUCTIVE PULMONARY DISEASE
     Route: 055
     Dates: start: 20180129, end: 20180304
  3. ALENDRONATE 70MG TABLETS WEEKLY [Concomitant]
     Dates: start: 20160101
  4. ALBUTEROL 2.5/3ML NEBULIZER SOLUTION [Concomitant]
     Dates: start: 20160101
  5. PAROXETINE 20MG TABLETS [Concomitant]
     Dates: start: 20130101
  6. LORAZEPAM 0.5MG TABS PRN [Concomitant]
     Dates: start: 20140101

REACTIONS (2)
  - Vision blurred [None]
  - Retching [None]

NARRATIVE: CASE EVENT DATE: 20180304
